FAERS Safety Report 25989510 (Version 1)
Quarter: 2025Q4

REPORT INFORMATION
  Report Type: Spontaneous
  Country: US (occurrence: None)
  Receive Date: 20251031
  Receipt Date: 20251031
  Transmission Date: 20260117
  Serious: Yes (Hospitalization)
  Sender: FDA-CTU
  Company Number: None

PATIENT
  Age: 76 Year
  Sex: Female
  Weight: 52.2 kg

DRUGS (12)
  1. KISQALI [Suspect]
     Active Substance: RIBOCICLIB SUCCINATE
     Indication: Breast cancer
     Dosage: OTHER FREQUENCY : DAILY DAYS 1-21;?
     Route: 048
     Dates: start: 20251017, end: 20251024
  2. ASPIRIN [Concomitant]
     Active Substance: ASPIRIN
  3. Centrum Multivitamin [Concomitant]
  4. ELIQUIS [Concomitant]
     Active Substance: APIXABAN
  5. GLIMEPIRIDE [Concomitant]
     Active Substance: GLIMEPIRIDE
  6. HYDROCODONE BITARTRATE AND ACETAMINOPHEN [Concomitant]
     Active Substance: ACETAMINOPHEN\HYDROCODONE BITARTRATE
  7. METFORMIN [Concomitant]
     Active Substance: METFORMIN HYDROCHLORIDE
  8. METOPROLOL SUCCINATE [Concomitant]
     Active Substance: METOPROLOL SUCCINATE
  9. OXYCODONE [Concomitant]
     Active Substance: OXYCODONE
  10. PIOGLITAZONE [Concomitant]
     Active Substance: PIOGLITAZONE
  11. LETROZOLE [Concomitant]
     Active Substance: LETROZOLE
  12. ONDANSETRON [Concomitant]
     Active Substance: ONDANSETRON

REACTIONS (2)
  - Asthenia [None]
  - Fatigue [None]

NARRATIVE: CASE EVENT DATE: 20251024
